FAERS Safety Report 22325029 (Version 1)
Quarter: 2023Q2

REPORT INFORMATION
  Report Type: Spontaneous
  Country: CN (occurrence: CN)
  Receive Date: 20230516
  Receipt Date: 20230516
  Transmission Date: 20230722
  Serious: Yes (Hospitalization)
  Sender: FDA-Public Use
  Company Number: CN-PFIZER INC-PV202300085863

PATIENT
  Age: 24 Year
  Sex: Female
  Weight: 82 kg

DRUGS (2)
  1. METHOTREXATE SODIUM [Suspect]
     Active Substance: METHOTREXATE SODIUM
     Indication: Abortion induced
     Dosage: 30 MG, 1X/DAY
     Route: 030
     Dates: start: 20230503, end: 20230507
  2. METHOTREXATE SODIUM [Suspect]
     Active Substance: METHOTREXATE SODIUM
     Indication: Ectopic pregnancy

REACTIONS (7)
  - Nausea [Recovering/Resolving]
  - Vomiting [Recovering/Resolving]
  - Mouth ulceration [Recovering/Resolving]
  - Rash [Recovering/Resolving]
  - Oropharyngeal pain [Recovering/Resolving]
  - Pruritus [Recovering/Resolving]
  - Off label use [Unknown]

NARRATIVE: CASE EVENT DATE: 20230508
